FAERS Safety Report 18134316 (Version 1)
Quarter: 2020Q3

REPORT INFORMATION
  Report Type: Spontaneous
  Country: US (occurrence: US)
  Receive Date: 20200807
  Receipt Date: 20200807
  Transmission Date: 20201103
  Serious: Yes (Hospitalization)
  Sender: FDA-Public Use
  Company Number: None

PATIENT
  Age: 58 Year
  Sex: Female

DRUGS (3)
  1. AMBRISENTAN 10MG TAB [Suspect]
     Active Substance: AMBRISENTAN
     Indication: PULMONARY HYPERTENSION
     Route: 048
     Dates: start: 20200226
  2. LETAIRIS [Concomitant]
     Active Substance: AMBRISENTAN
  3. RITUXAN [Concomitant]
     Active Substance: RITUXIMAB

REACTIONS (2)
  - Pneumonia [None]
  - Heart rate irregular [None]

NARRATIVE: CASE EVENT DATE: 20200729
